FAERS Safety Report 5097721-7 (Version None)
Quarter: 2006Q3

REPORT INFORMATION
  Report Type: 
  Country: None (occurrence: None)
  Receive Date: 20060901
  Receipt Date: 20060822
  Transmission Date: 20061208
  Serious: Yes (Other)
  Sender: FDA-Public Use
  Company Number: 147208USA

PATIENT
  Age: 56 Year
  Sex: Male
  Weight: 79.8331 kg

DRUGS (16)
  1. FLUOROURACIL [Suspect]
     Indication: PANCREATIC NEOPLASM
     Dates: start: 20060502, end: 20060530
  2. LEUCOVORIN [Suspect]
     Indication: PANCREATIC NEOPLASM
     Dates: start: 20060502, end: 20060530
  3. AVASTIN [Suspect]
     Indication: PANCREATIC NEOPLASM
     Dates: start: 20060502, end: 20060530
  4. DEXAMETHASONE TAB [Suspect]
     Indication: PANCREATIC NEOPLASM
     Dates: start: 20060502, end: 20060530
  5. LORAZEPAM [Suspect]
     Indication: PANCREATIC NEOPLASM
     Dates: start: 20060502, end: 20060530
  6. GRANISETRON [Suspect]
     Indication: PANCREATIC NEOPLASM
     Dates: start: 20060502, end: 20060530
  7. OXALIPLATIN [Suspect]
     Indication: PANCREATIC NEOPLASM
     Dates: start: 20060502, end: 20060530
  8. ACETAMINOPHEN [Concomitant]
  9. LOPERAMIDE HYDROCHLORIDE [Concomitant]
  10. LORAZEPAM [Concomitant]
  11. VICODIN [Concomitant]
  12. LISINOPRIL [Concomitant]
  13. AMLODIPINE BESYLATE [Concomitant]
  14. ASPIRIN [Concomitant]
  15. FEXOFENADINE HYDROCHLORIDE [Concomitant]
  16. OMEPRAZOLE [Concomitant]

REACTIONS (4)
  - DIARRHOEA [None]
  - NEUTROPENIA [None]
  - PYREXIA [None]
  - SMALL INTESTINAL OBSTRUCTION [None]
